FAERS Safety Report 24961107 (Version 1)
Quarter: 2025Q1

REPORT INFORMATION
  Report Type: Spontaneous
  Country: BE (occurrence: BE)
  Receive Date: 20250212
  Receipt Date: 20250212
  Transmission Date: 20250408
  Serious: Yes (Other)
  Sender: GILEAD
  Company Number: BE-GILEAD-2025-0703375

PATIENT
  Sex: Female

DRUGS (1)
  1. VIREAD [Suspect]
     Active Substance: TENOFOVIR DISOPROXIL FUMARATE
     Indication: Hepatitis B
     Route: 065
     Dates: start: 2022

REACTIONS (5)
  - Hepatic cirrhosis [Unknown]
  - Ascites [Unknown]
  - Child-Pugh-Turcotte score [Unknown]
  - Splenomegaly [Unknown]
  - Liver disorder [Unknown]
